FAERS Safety Report 10459986 (Version 1)
Quarter: 2014Q3

REPORT INFORMATION
  Report Type: Report from Study
  Country: MX (occurrence: MX)
  Receive Date: 20140917
  Receipt Date: 20140917
  Transmission Date: 20150326
  Serious: Yes (Other)
  Sender: FDA-Public Use
  Company Number: MX-UCBSA-2014010111

PATIENT
  Age: 71 Year
  Sex: Female
  Weight: 73 kg

DRUGS (15)
  1. BROMOCRIPTINA [Suspect]
     Active Substance: BROMOCRIPTINE
     Indication: PARKINSON^S DISEASE
     Dosage: 2.5 MG, 4X/DAY (QID)
     Dates: start: 20100426, end: 20111011
  2. STALEVO [Concomitant]
     Active Substance: CARBIDOPA\ENTACAPONE\LEVODOPA
     Dosage: 200/50/200 MG
     Dates: start: 20130327, end: 20140404
  3. BISACODILO [Concomitant]
     Indication: CONSTIPATION
     Dosage: 10 MG, AS NEEDED (PRN)
     Dates: start: 20100426
  4. CLONAZEPAM. [Concomitant]
     Active Substance: CLONAZEPAM
     Indication: INSOMNIA
     Dosage: 2.5 MG, ONCE DAILY (QD)
     Dates: start: 20100426
  5. ASPIRIN. [Concomitant]
     Active Substance: ASPIRIN
     Indication: PROPHYLAXIS
     Dosage: 100 MG, ONCE DAILY (QD)
     Dates: start: 20100426
  6. ROTIGOTINE PD [Suspect]
     Active Substance: ROTIGOTINE
     Indication: PARKINSON^S DISEASE
     Dosage: 4 MG, ONCE DAILY (QD)
     Dates: start: 20110709, end: 20110803
  7. PRAMIPEXOL [Suspect]
     Active Substance: PRAMIPEXOLE
     Indication: PARKINSON^S DISEASE
     Dosage: 0.75 MG, 2X/DAY (BID)
     Dates: start: 20120308, end: 20121126
  8. AMANTADINA [Concomitant]
     Indication: PARKINSON^S DISEASE
     Dosage: 50 MG, 2X/DAY (BID)
     Dates: start: 20110709, end: 20130327
  9. STALEVO [Concomitant]
     Active Substance: CARBIDOPA\ENTACAPONE\LEVODOPA
     Indication: PARKINSON^S DISEASE
     Dosage: 150/37.5/200MG
     Dates: start: 20100426, end: 20130327
  10. STALEVO [Concomitant]
     Active Substance: CARBIDOPA\ENTACAPONE\LEVODOPA
     Dosage: 200/50/200 MG
     Dates: start: 20140405
  11. LEVODOPA [Suspect]
     Active Substance: LEVODOPA
     Indication: PARKINSON^S DISEASE
     Dosage: UNK
  12. ROTIGOTINE PD [Suspect]
     Active Substance: ROTIGOTINE
     Dosage: 6 MG, ONCE DAILY (QD)
     Dates: start: 20110804, end: 20130327
  13. PRAMIPEXOL [Suspect]
     Active Substance: PRAMIPEXOLE
     Dosage: 1.5 MG, ONCE DAILY (QD)
     Dates: start: 20121127, end: 20130327
  14. MIRTAZAPINA [Concomitant]
     Active Substance: MIRTAZAPINE
     Indication: ANXIETY
     Dosage: 15 MG, ONCE DAILY (QD)
     Dates: start: 20100426, end: 20130327
  15. MIRTAZAPINA [Concomitant]
     Active Substance: MIRTAZAPINE
     Indication: DEPRESSION

REACTIONS (2)
  - Cardiac failure [Recovering/Resolving]
  - Aortic valve sclerosis [Recovering/Resolving]

NARRATIVE: CASE EVENT DATE: 20111011
